FAERS Safety Report 5661901-X (Version None)
Quarter: 2008Q1

REPORT INFORMATION
  Report Type: 
  Country: None (occurrence: None)
  Receive Date: 20080305
  Receipt Date: 20080220
  Transmission Date: 20080703
  Serious: Yes (Other)
  Sender: FDA-Public Use
  Company Number: B0510342A

PATIENT
  Age: 55 Year

DRUGS (1)
  1. EPIVIR [Suspect]
     Indication: HEPATITIS B
     Dosage: 150 MG / PER DAY / ORAL
     Route: 048

REACTIONS (2)
  - DRUG RESISTANCE [None]
  - HEPATITIS B VIRUS [None]
